FAERS Safety Report 4415686-5 (Version None)
Quarter: 2004Q3

REPORT INFORMATION
  Report Type: 
  Country: None (occurrence: None)
  Receive Date: 20040804
  Receipt Date: 20040727
  Transmission Date: 20050211
  Serious: Yes (Other)
  Sender: FDA-Public Use
  Company Number: PHNU2004DE02667

PATIENT
  Sex: Female

DRUGS (1)
  1. ESTRATEST [Suspect]

REACTIONS (3)
  - BREAST CANCER FEMALE [None]
  - LIVER FUNCTION TEST ABNORMAL [None]
  - LYMPHADENOPATHY [None]
